FAERS Safety Report 16824533 (Version 2)
Quarter: 2019Q4

REPORT INFORMATION
  Report Type: Spontaneous
  Country: US (occurrence: US)
  Receive Date: 20190918
  Receipt Date: 20191213
  Transmission Date: 20200122
  Serious: Yes (Other)
  Sender: FDA-Public Use
  Company Number: US-009507513-1909USA004116

PATIENT
  Sex: Female

DRUGS (1)
  1. NEXPLANON [Suspect]
     Active Substance: ETONOGESTREL
     Indication: CONTRACEPTION
     Dosage: 68 MILLIGRAM, FREQUENCY: ONE TIME
     Route: 059
     Dates: start: 201709, end: 20190414

REACTIONS (3)
  - Fatigue [Unknown]
  - Adverse reaction [Unknown]
  - Lyme disease [Unknown]

NARRATIVE: CASE EVENT DATE: 2019
